FAERS Safety Report 14382193 (Version 11)
Quarter: 2020Q1

REPORT INFORMATION
  Report Type: Spontaneous
  Country: US (occurrence: US)
  Receive Date: 20180112
  Receipt Date: 20200211
  Transmission Date: 20200409
  Serious: Yes (Hospitalization, Other)
  Sender: FDA-Public Use
  Company Number: US-ACTELION-A-NJ2018-165704

PATIENT
  Age: 64 Year
  Sex: Female
  Weight: 75.74 kg

DRUGS (12)
  1. ROSUVASTATIN. [Concomitant]
     Active Substance: ROSUVASTATIN
     Dosage: 5 MG, QD
     Dates: start: 2015
  2. ASPIRIN. [Concomitant]
     Active Substance: ASPIRIN
     Dosage: 81 MG, QD
  3. BIOTIN [Concomitant]
     Active Substance: BIOTIN
  4. ZYRTEC [Concomitant]
     Active Substance: CETIRIZINE HYDROCHLORIDE
     Dosage: 10 MG, QD
     Dates: start: 201808
  5. FUROSEMIDE. [Concomitant]
     Active Substance: FUROSEMIDE
     Dosage: 20 MG, QD
     Dates: start: 201705
  6. PREDNISONE. [Concomitant]
     Active Substance: PREDNISONE
     Dosage: 10 MG, QD
     Dates: start: 201710
  7. ELIQUIS [Concomitant]
     Active Substance: APIXABAN
     Dosage: 5 MG, QD
     Dates: start: 201706
  8. ESTRADIOL. [Concomitant]
     Active Substance: ESTRADIOL
     Dosage: 10 MCG, Q2WEEK
     Dates: start: 2013
  9. CLARITIN [Concomitant]
     Active Substance: LORATADINE
     Dosage: 5 MG, PRN
  10. OPSUMIT [Suspect]
     Active Substance: MACITENTAN
     Indication: PULMONARY ARTERIAL HYPERTENSION
     Dosage: 10 MG, QD
     Route: 048
     Dates: start: 20171208
  11. WARFARIN [Concomitant]
     Active Substance: WARFARIN
  12. METRONIDAZOLE. [Concomitant]
     Active Substance: METRONIDAZOLE
     Dosage: 0.75 %, QD

REACTIONS (17)
  - Tongue geographic [Recovered/Resolved]
  - Tongue erythema [Recovering/Resolving]
  - Condition aggravated [Recovering/Resolving]
  - Nausea [Recovered/Resolved]
  - Fall [Unknown]
  - Ear congestion [Not Recovered/Not Resolved]
  - Diarrhoea [Recovered/Resolved]
  - Ear infection [Unknown]
  - Abdominal pain upper [Recovered/Resolved]
  - Hospitalisation [Unknown]
  - Device dislocation [Recovered/Resolved]
  - Neoplasm [Not Recovered/Not Resolved]
  - Nasopharyngitis [Unknown]
  - Deafness [Not Recovered/Not Resolved]
  - Sinusitis [Not Recovered/Not Resolved]
  - Middle ear effusion [Recovered/Resolved]
  - Contusion [Unknown]

NARRATIVE: CASE EVENT DATE: 2018
